FAERS Safety Report 5474183-9 (Version None)
Quarter: 2007Q3

REPORT INFORMATION
  Report Type: 
  Country: None (occurrence: None)
  Receive Date: 20070928
  Receipt Date: 20070924
  Transmission Date: 20080115
  Serious: Yes (Other)
  Sender: FDA-Public Use
  Company Number: 2007331603

PATIENT
  Age: 37 Year
  Sex: Female
  Weight: 90.7194 kg

DRUGS (1)
  1. BENGAY PAIN RELIEVING PATCH (MENTHOL) [Suspect]
     Indication: ANALGESIA
     Dosage: 1 PATCH ONCE, TOPICAL
     Route: 061
     Dates: start: 20070919, end: 20070919

REACTIONS (2)
  - APPLICATION SITE BURN [None]
  - PHARMACEUTICAL PRODUCT COMPLAINT [None]
